FAERS Safety Report 25746516 (Version 1)
Quarter: 2025Q3

REPORT INFORMATION
  Report Type: Spontaneous
  Country: US (occurrence: US)
  Receive Date: 20250901
  Receipt Date: 20250901
  Transmission Date: 20251020
  Serious: Yes (Hospitalization)
  Sender: HISAMITSU PHARM
  Company Number: US-HISAMITSU-2025-US-039150

PATIENT
  Age: 88 Year
  Sex: Female

DRUGS (1)
  1. SALONPAS PAIN RELIEVING [Suspect]
     Active Substance: CAMPHOR (SYNTHETIC)\MENTHOL\METHYL SALICYLATE
     Indication: Off label use
     Route: 061
     Dates: start: 20250815, end: 20250816

REACTIONS (3)
  - Blood pressure increased [Recovered/Resolved]
  - Intentional product misuse [Recovered/Resolved]
  - Off label use [Recovered/Resolved]

NARRATIVE: CASE EVENT DATE: 20250815
